FAERS Safety Report 9179161 (Version 1)
Quarter: 2012Q4

REPORT INFORMATION
  Report Type: 
  Country: US (occurrence: US)
  Receive Date: 20121029
  Receipt Date: 20121029
  Transmission Date: 20130627
  Serious: No
  Sender: FDA-Public Use
  Company Number: US-AMGEN-USASP2012052579

PATIENT
  Age: 52 Year
  Sex: Male
  Weight: 92.97 kg

DRUGS (4)
  1. ENBREL [Suspect]
     Indication: PRODUCT USED FOR UNKNOWN INDICATION
     Dosage: 25 mg, 2 times/wk
     Dates: start: 2004
  2. LIPITOR [Concomitant]
     Dosage: 10 mg, UNK
  3. HYDROCHLOROTH [Concomitant]
     Dosage: 25 mg, UNK
  4. MULTIVITAMIN                       /00097801/ [Concomitant]
     Dosage: UNK

REACTIONS (1)
  - Lyme disease [Unknown]
